FAERS Safety Report 17270067 (Version 2)
Quarter: 2023Q1

REPORT INFORMATION
  Report Type: Spontaneous
  Country: US (occurrence: US)
  Receive Date: 20200114
  Receipt Date: 20230314
  Transmission Date: 20230418
  Serious: Yes (Other)
  Sender: FDA-Public Use
  Company Number: US-PARI RESPIRATORY EQUIPMENT, INC.-2019PAR00032

PATIENT
  Sex: Female
  Weight: 61.224 kg

DRUGS (11)
  1. KITABIS PAK [Suspect]
     Active Substance: TOBRAMYCIN
     Indication: Chronic obstructive pulmonary disease
     Dosage: 1 AMPULE (300 MG/5 ML), 2X/DAY FOR 28 DAYS ON AND 28 DAYS OFF
  2. KITABIS PAK [Suspect]
     Active Substance: TOBRAMYCIN
     Indication: Bronchiectasis
     Dosage: 1 AMPULE (300 MG/5 ML), 2X/DAY FOR 28 DAYS ON AND 28 DAYS OFF
  3. KITABIS PAK [Suspect]
     Active Substance: TOBRAMYCIN
     Indication: Asthma
  4. KITABIS PAK [Suspect]
     Active Substance: TOBRAMYCIN
     Indication: Pseudomonas infection
  5. KITABIS PAK [Suspect]
     Active Substance: TOBRAMYCIN
     Indication: Bronchitis chronic
  6. DAILY VITE [ASCORBIC ACID;COLECALCIFEROL;CYANOCOBALAMIN;FOLIC ACID;NIC [Concomitant]
  7. MUCINEX [Concomitant]
     Active Substance: GUAIFENESIN
  8. CALCIUM [Concomitant]
     Active Substance: CALCIUM
  9. MINERALS\VITAMINS [Concomitant]
     Active Substance: MINERALS\VITAMINS
  10. TYLENOL [Concomitant]
     Active Substance: ACETAMINOPHEN
  11. VITAMIN D3 [Concomitant]
     Active Substance: CHOLECALCIFEROL

REACTIONS (8)
  - Pneumonia [Recovered/Resolved]
  - Urinary tract infection [Unknown]
  - Fungal infection [Unknown]
  - Discomfort [Not Recovered/Not Resolved]
  - Sinusitis [Recovered/Resolved]
  - Ear infection [Recovered/Resolved]
  - Pulmonary congestion [Recovered/Resolved]
  - Off label use [Not Recovered/Not Resolved]

NARRATIVE: CASE EVENT DATE: 20190101
